FAERS Safety Report 10377465 (Version 2)
Quarter: 2014Q3

REPORT INFORMATION
  Report Type: Spontaneous
  Country: JP (occurrence: JP)
  Receive Date: 20140812
  Receipt Date: 20140907
  Transmission Date: 20150326
  Serious: Yes (Hospitalization, Other)
  Sender: FDA-Public Use
  Company Number: PHHY2013JP160313

PATIENT
  Age: 79 Year
  Sex: Male

DRUGS (1)
  1. GLIVEC [Suspect]
     Active Substance: IMATINIB MESYLATE
     Indication: CHRONIC MYELOID LEUKAEMIA

REACTIONS (5)
  - Platelet count decreased [Unknown]
  - Pyrexia [Unknown]
  - Myalgia [Unknown]
  - Second primary malignancy [Unknown]
  - Colon cancer [Unknown]
